FAERS Safety Report 9008604 (Version 1)
Quarter: 2013Q1

REPORT INFORMATION
  Report Type: Spontaneous
  Country: FR (occurrence: FR)
  Receive Date: 20130111
  Receipt Date: 20130111
  Transmission Date: 20140127
  Serious: Yes (Hospitalization)
  Sender: FDA-Public Use
  Company Number: FR-ROCHE-1178821

PATIENT
  Age: 38 Year
  Sex: Female

DRUGS (2)
  1. VALIUM [Suspect]
     Indication: PRODUCT USED FOR UNKNOWN INDICATION
     Route: 048
     Dates: start: 20120917, end: 20121205
  2. LARGACTIL [Suspect]
     Indication: DECREASED APPETITE
     Route: 048
     Dates: start: 20121127, end: 20121205

REACTIONS (3)
  - Pyrexia [Recovering/Resolving]
  - Hepatocellular injury [Recovering/Resolving]
  - Cholestasis [Recovering/Resolving]
